FAERS Safety Report 8110683-0 (Version None)
Quarter: 2012Q1

REPORT INFORMATION
  Report Type: 
  Country: None (occurrence: None)
  Receive Date: 20120203
  Receipt Date: 20120130
  Transmission Date: 20120608
  Serious: Yes (Other)
  Sender: FDA-Public Use
  Company Number: US-SP-2011-07513

PATIENT
  Age: 85 Year
  Sex: Male

DRUGS (8)
  1. ASPIRIN [Concomitant]
  2. OXYBUTYNIN [Concomitant]
  3. THERACYS [Suspect]
     Indication: BLADDER CANCER
     Route: 043
     Dates: start: 20110603, end: 20110620
  4. FLOMAX [Concomitant]
  5. PREDNISONE TAB [Concomitant]
  6. IBUPROFEN (ADVIL) [Concomitant]
  7. ATENOLOL [Concomitant]
  8. INTERFERON [Suspect]
     Indication: BLADDER CANCER
     Route: 043
     Dates: start: 20110603, end: 20110620

REACTIONS (7)
  - DYSURIA [None]
  - INCORRECT DOSE ADMINISTERED [None]
  - ACTIVITIES OF DAILY LIVING IMPAIRED [None]
  - MICTURITION URGENCY [None]
  - INSOMNIA [None]
  - BLADDER IRRITATION [None]
  - POLLAKIURIA [None]
